FAERS Safety Report 4327635-9 (Version None)
Quarter: 2004Q1

REPORT INFORMATION
  Report Type: 
  Country: None (occurrence: None)
  Receive Date: 20040331
  Receipt Date: 20040219
  Transmission Date: 20041129
  Serious: Yes (Hospitalization, Other)
  Sender: FDA-Public Use
  Company Number: PHFR2004GB01173

PATIENT
  Age: 57 Year
  Sex: Female

DRUGS (3)
  1. TRILEPTAL [Suspect]
     Dosage: 600 MG, BID
     Route: 048
  2. DILTIAZEM [Concomitant]
     Dosage: 90 MG, BID
     Route: 048
  3. ASPIRIN [Concomitant]
     Dosage: 75 MG, QD
     Route: 048

REACTIONS (3)
  - HYPERTROPHIC CARDIOMYOPATHY [None]
  - HYPONATRAEMIA [None]
  - PNEUMONIA [None]
